FAERS Safety Report 7903744-X (Version None)
Quarter: 2011Q4

REPORT INFORMATION
  Report Type: 
  Country: None (occurrence: None)
  Receive Date: 20111109
  Receipt Date: 20111104
  Transmission Date: 20120403
  Serious: Yes (Death, Hospitalization)
  Sender: FDA-Public Use
  Company Number: BE-SANOFI-AVENTIS-2011SA072682

PATIENT
  Age: 70 Year
  Sex: Male

DRUGS (3)
  1. ELOXATIN [Suspect]
     Route: 065
     Dates: start: 20110228
  2. ELOXATIN [Suspect]
     Dosage: 100 MG: BATCH D1A715, 50 MG: BATCH D1A298.
     Route: 065
     Dates: start: 20111031, end: 20111031
  3. ELOXATIN [Suspect]
     Dosage: 100 MG: BATCH D1A715, 50 MG: BATCH D1A298.
     Route: 065
     Dates: start: 20111031, end: 20111031

REACTIONS (4)
  - CHILLS [None]
  - ERYTHEMA [None]
  - MYOCARDIAL INFARCTION [None]
  - TREMOR [None]
